FAERS Safety Report 5443441-6 (Version None)
Quarter: 2007Q3

REPORT INFORMATION
  Report Type: 
  Country: None (occurrence: None)
  Receive Date: 20070730
  Receipt Date: 20070410
  Transmission Date: 20080115
  Serious: Yes (Life-Threatening, Hospitalization, Disabling)
  Sender: FDA-Public Use
  Company Number: 235107

PATIENT
  Age: 19 Year
  Sex: Female
  Weight: 31.7 kg

DRUGS (1)
  1. RITUXAN [Suspect]
     Indication: LUNG TRANSPLANT
     Dosage: 1/WEEK, INTRAVENOUS
     Route: 042
     Dates: start: 20060301

REACTIONS (1)
  - CRYPTOGENIC ORGANISING PNEUMONIA [None]
